FAERS Safety Report 5015326-0 (Version None)
Quarter: 2006Q2

REPORT INFORMATION
  Report Type: 
  Country: None (occurrence: None)
  Receive Date: 20060601
  Receipt Date: 20060208
  Transmission Date: 20061013
  Serious: Yes (Hospitalization)
  Sender: FDA-Public Use
  Company Number: US-SANOFI-SYNTHELABO-A03200600739

PATIENT
  Sex: Male
  Weight: 79.4 kg

DRUGS (4)
  1. ATENOLOL [Concomitant]
     Dosage: UNK
     Route: 048
  2. ELOXATIN [Suspect]
     Indication: COLON CANCER
     Route: 042
     Dates: start: 20060110, end: 20060110
  3. LEUCOVORIN [Concomitant]
     Route: 042
     Dates: start: 20050809, end: 20060110
  4. FLUOROURACIL [Concomitant]
     Route: 042
     Dates: start: 20050809, end: 20060110

REACTIONS (4)
  - ABDOMINAL PAIN [None]
  - DIALYSIS [None]
  - INFUSION RELATED REACTION [None]
  - RENAL FAILURE ACUTE [None]
